FAERS Safety Report 23704688 (Version 8)
Quarter: 2025Q2

REPORT INFORMATION
  Report Type: Spontaneous
  Country: US (occurrence: US)
  Receive Date: 20240404
  Receipt Date: 20250507
  Transmission Date: 20250717
  Serious: Yes (Other)
  Sender: BRISTOL-MYERS SQUIBB COMPANY
  Company Number: US-BRISTOL-MYERS SQUIBB COMPANY-2024-052907

PATIENT
  Age: 65 Year
  Sex: Female

DRUGS (9)
  1. POMALYST [Suspect]
     Active Substance: POMALIDOMIDE
     Indication: Plasma cell myeloma
     Route: 048
     Dates: end: 20240331
  2. POMALYST [Suspect]
     Active Substance: POMALIDOMIDE
     Dosage: TAKE 1 CAPSULE BY MOUTH DAILY ON AN EMPTY STOMACH FOR 21 DAYS FOLLOWED BY 7 DAYS OFF. DON^T BREAK, C
     Route: 048
  3. POMALYST [Suspect]
     Active Substance: POMALIDOMIDE
     Dates: start: 202405
  4. POMALYST [Suspect]
     Active Substance: POMALIDOMIDE
     Dosage: TAKE 1 CAPSULE BY MOUTH DAILY. FAST FOR 21 DAYS FOLLOWED BY 7 DAYS OF REST
     Route: 048
  5. POMALYST [Suspect]
     Active Substance: POMALIDOMIDE
     Dosage: TAKE 1 CAPSULE BY MOUTH DAILY. FAST FOR 21 DAYS FOLLOWED BY 7 DAYS OF REST
     Route: 048
  6. POMALYST [Suspect]
     Active Substance: POMALIDOMIDE
     Route: 048
  7. POMALYST [Suspect]
     Active Substance: POMALIDOMIDE
     Route: 048
  8. POMALYST [Suspect]
     Active Substance: POMALIDOMIDE
     Route: 048
  9. POMALYST [Suspect]
     Active Substance: POMALIDOMIDE
     Dosage: TAKE 1 CAPSULE BY ORAL ROUTE ONE ONCE A DAY FOR 21 DAYS AND THEN SUSPENDED FOR 7 DAYS
     Route: 048

REACTIONS (10)
  - Pyrexia [Recovering/Resolving]
  - Pneumonia [Recovered/Resolved]
  - Abdominal pain upper [Not Recovered/Not Resolved]
  - Muscle spasms [Not Recovered/Not Resolved]
  - Oedema peripheral [Not Recovered/Not Resolved]
  - Dry skin [Not Recovered/Not Resolved]
  - Gastric infection [Recovered/Resolved]
  - Product dose omission issue [Unknown]
  - Pain in extremity [Recovering/Resolving]
  - Influenza [Recovering/Resolving]
